FAERS Safety Report 6291023-9 (Version None)
Quarter: 2009Q3

REPORT INFORMATION
  Report Type: 
  Country: None (occurrence: None)
  Receive Date: 20090730
  Receipt Date: 20090729
  Transmission Date: 20100115
  Serious: Yes (Other)
  Sender: FDA-Public Use
  Company Number: A0799359A

PATIENT
  Age: 31 Year
  Sex: Female

DRUGS (1)
  1. ALLI [Suspect]
     Indication: WEIGHT LOSS DIET
     Route: 048
     Dates: start: 20090701

REACTIONS (5)
  - ANORECTAL DISCOMFORT [None]
  - INTENTIONAL DRUG MISUSE [None]
  - PROCTALGIA [None]
  - RECTAL HAEMORRHAGE [None]
  - STEATORRHOEA [None]
